FAERS Safety Report 4852742-1 (Version None)
Quarter: 2005Q4

REPORT INFORMATION
  Report Type: 
  Country: None (occurrence: None)
  Receive Date: 20051213
  Receipt Date: 20051205
  Transmission Date: 20060501
  Serious: Yes (Other)
  Sender: FDA-Public Use
  Company Number: PHFR2005GB03932

PATIENT
  Sex: Male

DRUGS (1)
  1. VOLTAREN [Suspect]
     Indication: SHOULDER PAIN
     Route: 065

REACTIONS (1)
  - VENTRICULAR ARRHYTHMIA [None]
